FAERS Safety Report 22223271 (Version 1)
Quarter: 2023Q2

REPORT INFORMATION
  Report Type: Spontaneous
  Country: US (occurrence: None)
  Receive Date: 20230418
  Receipt Date: 20230418
  Transmission Date: 20230722
  Serious: No
  Sender: FDA-Public Use
  Company Number: 2023A079943

PATIENT
  Sex: Female
  Weight: 132 kg

DRUGS (2)
  1. TAGRISSO [Suspect]
     Active Substance: OSIMERTINIB
     Indication: Lung neoplasm malignant
     Route: 048
     Dates: start: 202110
  2. TAGRISSO [Suspect]
     Active Substance: OSIMERTINIB
     Indication: Lung operation
     Route: 048
     Dates: start: 202110

REACTIONS (3)
  - Dyspnoea [Unknown]
  - Depression [Unknown]
  - Off label use [Unknown]
